FAERS Safety Report 18403674 (Version 1)
Quarter: 2020Q4

REPORT INFORMATION
  Report Type: Spontaneous
  Country: US (occurrence: US)
  Receive Date: 20201020
  Receipt Date: 20201020
  Transmission Date: 20210114
  Serious: No
  Sender: FDA-Public Use
  Company Number: None

PATIENT
  Age: 48 Year
  Sex: Female
  Weight: 73.8 kg

DRUGS (5)
  1. NPLATE [Suspect]
     Active Substance: ROMIPLOSTIM
     Indication: IMMUNE THROMBOCYTOPENIA
     Dosage: ?          QUANTITY:1 INJECTION(S);OTHER FREQUENCY:ONCE A WEEK;?
     Route: 030
     Dates: start: 20200120, end: 20200223
  2. OCCASIONAL PAPAYA LEAF EXTRACT [Concomitant]
  3. VITAMIN  B [Concomitant]
     Active Substance: VITAMIN B
  4. PROBIOTICS [Concomitant]
     Active Substance: PROBIOTICS NOS
  5. VITAMIN D [Concomitant]
     Active Substance: VITAMIN D NOS

REACTIONS (15)
  - Dysstasia [None]
  - Insomnia [None]
  - Hypoaesthesia [None]
  - Nervousness [None]
  - Gait disturbance [None]
  - Thyroid disorder [None]
  - Muscle atrophy [None]
  - Nerve injury [None]
  - Paraesthesia [None]
  - Myalgia [None]
  - Depression [None]
  - Pain in extremity [None]
  - Weight decreased [None]
  - Mood altered [None]
  - Tremor [None]

NARRATIVE: CASE EVENT DATE: 20200301
